FAERS Safety Report 22370786 (Version 2)
Quarter: 2024Q2

REPORT INFORMATION
  Report Type: Spontaneous
  Country: FR (occurrence: FR)
  Receive Date: 20230526
  Receipt Date: 20240511
  Transmission Date: 20240716
  Serious: Yes (Hospitalization)
  Sender: FDA-Public Use
  Company Number: None

PATIENT
  Age: 44 Year
  Sex: Female

DRUGS (9)
  1. FLUOROURACIL [Suspect]
     Active Substance: FLUOROURACIL
     Indication: Breast cancer
     Dosage: TIME INTERVAL: CYCLICAL: DOSAGE TEXT: 930 MG X 3 CYCLES
     Route: 042
     Dates: start: 20190829, end: 20191010
  2. EPIRUBICIN [Suspect]
     Active Substance: EPIRUBICIN
     Indication: Breast cancer
     Dosage: TIME INTERVAL: CYCLICAL: DOSAGE TEXT: 186MG X 3 CYCLES
     Route: 042
     Dates: start: 20190829, end: 20191010
  3. METFORMIN HYDROCHLORIDE [Concomitant]
     Active Substance: METFORMIN HYDROCHLORIDE
     Indication: Product used for unknown indication
     Route: 065
  4. KADCYLA [Suspect]
     Active Substance: ADO-TRASTUZUMAB EMTANSINE
     Indication: Breast cancer
     Dosage: TIME INTERVAL: CYCLICAL: DOSAGE TEXT: 288 MG X 14 CYCLES
     Route: 042
     Dates: start: 20191206, end: 20200914
  5. TRULICITY [Concomitant]
     Active Substance: DULAGLUTIDE
     Indication: Product used for unknown indication
     Route: 065
  6. CYCLOPHOSPHAMIDE [Suspect]
     Active Substance: CYCLOPHOSPHAMIDE
     Indication: Breast cancer
     Dosage: TIME INTERVAL: CYCLICAL: DOSAGE TEXT: 930 MG X 3 CYCLES
     Route: 042
     Dates: start: 20190829, end: 20191010
  7. TAXOTERE [Suspect]
     Active Substance: DOCETAXEL
     Indication: Breast cancer
     Dosage: TIME INTERVAL: CYCLICAL: DOSAGE TEXT: 183 MG X 3 CYCLES
     Route: 042
     Dates: start: 20190627, end: 20190808
  8. HERCEPTIN [Suspect]
     Active Substance: TRASTUZUMAB
     Indication: Breast cancer
     Dosage: TIME INTERVAL: CYCLICAL: DOSAGE TEXT: 680 MG X 3 CYCLES
     Route: 042
     Dates: start: 20190627, end: 20190808
  9. GLICLAZIDE [Concomitant]
     Active Substance: GLICLAZIDE
     Indication: Product used for unknown indication
     Route: 065

REACTIONS (1)
  - Pulmonary arterial hypertension [Not Recovered/Not Resolved]

NARRATIVE: CASE EVENT DATE: 20201201
